FAERS Safety Report 6317418-2 (Version None)
Quarter: 2009Q3

REPORT INFORMATION
  Report Type: 
  Country: None (occurrence: None)
  Receive Date: 20090820
  Receipt Date: 20090820
  Transmission Date: 20100115
  Serious: Yes (Other)
  Sender: FDA-Public Use
  Company Number: None

PATIENT
  Age: 71 Year
  Sex: Female
  Weight: 58.9676 kg

DRUGS (2)
  1. VICODIN [Suspect]
     Dosage: 1 EVERY 4 HRS.
  2. VICODIN [Suspect]
     Dosage: 1 EVERY 4 HRS

REACTIONS (11)
  - ACTIVITIES OF DAILY LIVING IMPAIRED [None]
  - ARTHROPATHY [None]
  - BACK PAIN [None]
  - BREAST PAIN [None]
  - DRUG INEFFECTIVE [None]
  - FALL [None]
  - HEADACHE [None]
  - LIMB INJURY [None]
  - PRODUCT QUALITY ISSUE [None]
  - TOOTH DISORDER [None]
  - VICTIM OF CRIME [None]
